FAERS Safety Report 9141877 (Version 2)
Quarter: 2013Q2

REPORT INFORMATION
  Report Type: Spontaneous
  Country: US (occurrence: US)
  Receive Date: 20130305
  Receipt Date: 20130404
  Transmission Date: 20140414
  Serious: No
  Sender: FDA-Public Use
  Company Number: US-AMGEN-USASP2013007903

PATIENT
  Age: 32 Year
  Sex: Female
  Weight: 50.34 kg

DRUGS (2)
  1. ENBREL [Suspect]
     Indication: PSORIASIS
     Dosage: 50 MG, QWK
     Route: 058
     Dates: start: 20101201
  2. CLOBEX                             /00337102/ [Concomitant]
     Dosage: ONE SPRAY BID AS NEEDED
     Route: 061

REACTIONS (3)
  - Feeling cold [Recovered/Resolved]
  - Pyrexia [Recovered/Resolved]
  - Chills [Recovered/Resolved]
